FAERS Safety Report 23375564 (Version 1)
Quarter: 2024Q1

REPORT INFORMATION
  Report Type: Spontaneous
  Country: BG (occurrence: BG)
  Receive Date: 20240107
  Receipt Date: 20240107
  Transmission Date: 20240410
  Serious: Yes (Other)
  Sender: FDA-Public Use
  Company Number: BG-PRINSTON PHARMACEUTICAL INC.-2023PRN00650

PATIENT
  Age: 51 Year
  Sex: Female

DRUGS (3)
  1. NEBIVOLOL [Suspect]
     Active Substance: NEBIVOLOL
     Indication: Hypertension
     Dosage: 5 MG, 1X/DAY (TAKEN IRREGULARLY)
     Route: 048
  2. BISOPROLOL FUMARATE [Suspect]
     Active Substance: BISOPROLOL FUMARATE
     Indication: Hypertension
     Dosage: 5 MG (TAKEN IRREGULARLY)
     Route: 048
  3. PERINDOPRIL [Suspect]
     Active Substance: PERINDOPRIL
     Indication: Hypertension
     Dosage: 10 MG (TAKEN IRREGULARLY)
     Route: 048

REACTIONS (1)
  - Nodular melanoma [Unknown]
